FAERS Safety Report 6919489-9 (Version None)
Quarter: 2010Q3

REPORT INFORMATION
  Report Type: 
  Country: None (occurrence: None)
  Receive Date: 20100811
  Receipt Date: 20100803
  Transmission Date: 20110219
  Serious: Yes (Other)
  Sender: FDA-Public Use
  Company Number: CZ-BAXTER-2010BH020777

PATIENT
  Age: 66 Year
  Sex: Male

DRUGS (6)
  1. GAMMAGARD LIQUID [Suspect]
     Indication: IMMUNODEFICIENCY
     Route: 042
     Dates: start: 20100730, end: 20100730
  2. GAMMAGARD LIQUID [Suspect]
     Indication: LYMPHOCYTIC LEUKAEMIA
     Route: 042
     Dates: start: 20100730, end: 20100730
  3. RITUXIMAB [Concomitant]
  4. FLUDARABINE [Concomitant]
  5. CYCLOPHOSPHAMIDE [Concomitant]
  6. ANTIBIOTICS [Concomitant]
     Indication: CELLULITIS

REACTIONS (3)
  - DYSPNOEA [None]
  - HYPOTENSION [None]
  - TACHYCARDIA [None]
